FAERS Safety Report 9914233 (Version 3)
Quarter: 2014Q2

REPORT INFORMATION
  Report Type: Spontaneous
  Country: US (occurrence: None)
  Receive Date: 20140218
  Receipt Date: 20140401
  Transmission Date: 20141212
  Serious: Yes (Hospitalization)
  Sender: FDA-Public Use
  Company Number: 2014-US-001604

PATIENT
  Age: 63 Year
  Sex: Female

DRUGS (1)
  1. XYREM [Suspect]
     Indication: INSOMNIA
     Route: 048
     Dates: start: 201312, end: 201401

REACTIONS (9)
  - Convulsion [None]
  - Kidney infection [None]
  - Hypertension [None]
  - Loss of consciousness [None]
  - Fall [None]
  - Back pain [None]
  - Feeling abnormal [None]
  - Nasopharyngitis [None]
  - Off label use [None]
